FAERS Safety Report 9257082 (Version 2)
Quarter: 2013Q2

REPORT INFORMATION
  Report Type: Spontaneous
  Country: FR (occurrence: None)
  Receive Date: 20130423
  Receipt Date: 20130501
  Transmission Date: 20140414
  Serious: Yes (Hospitalization)
  Sender: FDA-Public Use
  Company Number: 20130186

PATIENT
  Age: 26 Year
  Sex: Female

DRUGS (11)
  1. VENOFER [Suspect]
     Indication: PRODUCT USED FOR UNKNOWN INDICATION
     Dosage: 200 MG, 1 IN 1 TOTAL
     Dates: start: 20130307, end: 20130307
  2. PROPOFOL [Suspect]
     Indication: GENERAL ANAESTHESIA
  3. CEFAZOLIN [Suspect]
     Dosage: 1 G TWICE PER DAY
     Dates: start: 20130306, end: 20130307
  4. ARIXTRA (FONDAPARINUX SODIUM) [Suspect]
     Indication: BUDD-CHIARI SYNDROME
     Dosage: 7.5 MG, 1 IN 1 D
     Dates: start: 201211
  5. PREVISCAN (FLUINDIONE) [Suspect]
     Indication: PRODUCT USED FOR UNKNOWN INDICATION
     Dosage: DOSE UNKNOWN
  6. LASILIX (FUROSEMIDE) [Concomitant]
  7. SUFENTA (SUFENTANIL CITRATE) INJECTION [Concomitant]
  8. ACUPAN (NEFOPAM HYDROCHLORIDE) [Concomitant]
  9. XYLOCAINE (LIDOCAINE) [Concomitant]
  10. PERFALGAN [Concomitant]
  11. MIVACRON (MIVACURIUM CHLORIDE) [Concomitant]

REACTIONS (1)
  - Agranulocytosis [None]
